FAERS Safety Report 17180529 (Version 2)
Quarter: 2019Q4

REPORT INFORMATION
  Report Type: Spontaneous
  Country: JP (occurrence: JP)
  Receive Date: 20191219
  Receipt Date: 20191231
  Transmission Date: 20200122
  Serious: Yes (Death, Other)
  Sender: FDA-Public Use
  Company Number: JP-BAYER-2019-228245

PATIENT
  Age: 84 Year
  Sex: Male
  Weight: 71.4 kg

DRUGS (16)
  1. DEXAMETHASONE. [Suspect]
     Active Substance: DEXAMETHASONE
     Indication: HORMONE-REFRACTORY PROSTATE CANCER
     Dosage: DAILY DOSE .5 MG
     Route: 048
  2. ABIRATERONE ACETATE. [Concomitant]
     Active Substance: ABIRATERONE ACETATE
     Dosage: UNK
     Dates: start: 20170309, end: 20171012
  3. MAGMITT [Concomitant]
     Active Substance: MAGNESIUM OXIDE
     Indication: CONSTIPATION
     Dosage: DAILY DOSE 1000 MG
     Route: 048
     Dates: end: 20171026
  4. ONETRAM [Concomitant]
     Active Substance: TRAMADOL HYDROCHLORIDE
     Dosage: DAILY DOSE 200 MG
     Dates: start: 20171114
  5. LOXOPROFEN [Concomitant]
     Active Substance: LOXOPROFEN
     Indication: PAIN
     Dosage: DAILY DOSE 60 MG
     Route: 048
  6. XOFIGO [Suspect]
     Active Substance: RADIUM RA-223 DICHLORIDE
     Indication: HORMONE-REFRACTORY PROSTATE CANCER
     Dosage: UNK
     Dates: start: 20171108, end: 20171108
  7. ZYTIGA [Suspect]
     Active Substance: ABIRATERONE ACETATE
     Indication: HORMONE-REFRACTORY PROSTATE CANCER
     Dosage: DAILY DOSE 750 MG
     Route: 048
     Dates: end: 20171012
  8. XOFIGO [Suspect]
     Active Substance: RADIUM RA-223 DICHLORIDE
     Indication: METASTASES TO BONE
     Dosage: UNK
     Dates: start: 20170927, end: 20170927
  9. ESTRACYT [ESTRAMUSTINE MEGLUMINE PHOSPHATE] [Concomitant]
     Active Substance: ESTRAMUSTINE PHOSPHATE MEGLUMINE
     Indication: HORMONE-REFRACTORY PROSTATE CANCER
     Dosage: DAILY DOSE 626.8 MG
     Route: 048
     Dates: start: 20171026, end: 20171222
  10. ZOLEDRONIC [Concomitant]
     Active Substance: ZOLEDRONIC ACID
     Indication: METASTASES TO BONE
     Dosage: DAILY DOSE 4 MG
     Dates: start: 20170920, end: 20171026
  11. XOFIGO [Suspect]
     Active Substance: RADIUM RA-223 DICHLORIDE
     Indication: METASTASES TO BONE
     Dosage: UNK
     Dates: start: 20171206, end: 20171206
  12. TAKECAB [Concomitant]
     Active Substance: VONOPRAZAN FUMURATE
     Indication: PROPHYLAXIS AGAINST GASTROINTESTINAL ULCER
     Dosage: DAILY DOSE 10 MG
     Route: 048
  13. ESTRACYT [ESTRAMUSTINE MEGLUMINE PHOSPHATE] [Concomitant]
     Active Substance: ESTRAMUSTINE PHOSPHATE MEGLUMINE
     Indication: HORMONE-REFRACTORY PROSTATE CANCER
     Dosage: DAILY DOSE 156.7 MG
     Route: 048
     Dates: start: 20171012, end: 20171025
  14. ONETRAM [Concomitant]
     Active Substance: TRAMADOL HYDROCHLORIDE
     Dosage: DAILY DOSE 100 MG
     Dates: start: 20171026, end: 20171113
  15. GOSERELIN ACETATE [Concomitant]
     Active Substance: GOSERELIN ACETATE
     Dosage: UNK
     Dates: start: 20111130, end: 20171026
  16. URIEF [Concomitant]
     Active Substance: SILODOSIN
     Indication: BENIGN PROSTATIC HYPERPLASIA
     Dosage: DAILY DOSE 8 MG
     Route: 048
     Dates: end: 20171012

REACTIONS (5)
  - Pelvic pain [None]
  - Ilium fracture [Unknown]
  - Decreased appetite [None]
  - Platelet count decreased [Not Recovered/Not Resolved]
  - Hormone-refractory prostate cancer [Fatal]

NARRATIVE: CASE EVENT DATE: 20171026
